FAERS Safety Report 8015414-0 (Version None)
Quarter: 2011Q4

REPORT INFORMATION
  Report Type: 
  Country: None (occurrence: None)
  Receive Date: 20111230
  Receipt Date: 20111221
  Transmission Date: 20120403
  Serious: Yes (Hospitalization)
  Sender: FDA-Public Use
  Company Number: DE-BRISTOL-MYERS SQUIBB COMPANY-16319261

PATIENT
  Age: 54 Year
  Sex: Male
  Weight: 49 kg

DRUGS (5)
  1. DOCETAXEL [Suspect]
     Indication: MALIGNANT RESPIRATORY TRACT NEOPLASM
     Dosage: 75MG/M2 INF: DAY 1 OF WK4 ANDDAY 1 OF WK7.
     Route: 042
  2. RAMIPRIL [Concomitant]
     Route: 048
     Dates: start: 20111013
  3. CISPLATIN [Suspect]
     Indication: MALIGNANT RESPIRATORY TRACT NEOPLASM
     Dosage: 75MG/M2 INF: DAY 1 OF WK4 AND DAY 1 OF WK7.
     Route: 042
     Dates: start: 20110811, end: 20110929
  4. CETUXIMAB [Suspect]
     Indication: MALIGNANT RESPIRATORY TRACT NEOPLASM
     Dosage: 400MG/M2 DAY1, 250MG/M2-WEEKLY
     Route: 042
     Dates: start: 20110811
  5. ASPIRIN [Concomitant]
     Route: 048

REACTIONS (3)
  - HYPONATRAEMIA [None]
  - KARNOFSKY SCALE WORSENED [None]
  - HYPOTENSION [None]
